FAERS Safety Report 4313572-2 (Version None)
Quarter: 2004Q1

REPORT INFORMATION
  Report Type: 
  Country: None (occurrence: None)
  Receive Date: 20040304
  Receipt Date: 20040218
  Transmission Date: 20041129
  Serious: Yes (Hospitalization, Other)
  Sender: FDA-Public Use
  Company Number: US_010260571

PATIENT
  Age: 39 Year
  Sex: Female
  Weight: 60 kg

DRUGS (7)
  1. HUMALOG MIX 75/25 [Suspect]
     Indication: DIABETES MELLITUS
     Dosage: 25 U/DAY
     Dates: start: 20010220
  2. ILETIN-INSULIN-ANIMAL (UNKNOWN FORMULATION) (INSULI [Suspect]
     Indication: DIABETES MELLITUS
     Dates: start: 19580101, end: 19640101
  3. HUMULIN N [Suspect]
     Indication: DIABETES MELLITUS
     Dates: end: 19960101
  4. HUMULIN R [Suspect]
     Indication: DIABETES MELLITUS
  5. HUMULIN 70/30 [Suspect]
     Indication: DIABETES MELLITUS
     Dosage: 30 U/DAY
     Dates: start: 19960101, end: 20010220
  6. CHEMOPROCTOL [Concomitant]
  7. METOCLOPRAMIDE [Concomitant]

REACTIONS (12)
  - ANGIOSARCOMA [None]
  - BLOOD GLUCOSE FLUCTUATION [None]
  - BLOOD GLUCOSE INCREASED [None]
  - EYE OEDEMA [None]
  - FOOD INTOLERANCE [None]
  - IMPAIRED GASTRIC EMPTYING [None]
  - NEUROPATHY PERIPHERAL [None]
  - RETCHING [None]
  - TOOTH DISORDER [None]
  - TREATMENT NONCOMPLIANCE [None]
  - VIRAL INFECTION [None]
  - VISUAL ACUITY REDUCED [None]
